FAERS Safety Report 8582423-2 (Version None)
Quarter: 2012Q3

REPORT INFORMATION
  Report Type: 
  Country: None (occurrence: None)
  Receive Date: 20120809
  Receipt Date: 20120731
  Transmission Date: 20120928
  Serious: Yes (Hospitalization)
  Sender: FDA-Public Use
  Company Number: FR-GLAXOSMITHKLINE-B0819376A

PATIENT
  Age: 67 Year
  Sex: Female

DRUGS (10)
  1. DASATINIB [Concomitant]
     Dates: start: 20120604
  2. TAZOBACTAM [Concomitant]
     Route: 065
  3. DEXAMETHASONE [Concomitant]
     Dates: start: 20120604
  4. IMATINIB MESYLATE [Concomitant]
     Dates: start: 20120604
  5. ZOVIRAX [Suspect]
     Indication: SIMPLEX VIRUS TEST POSITIVE
     Dosage: 350MG PER DAY
     Route: 042
     Dates: start: 20120609
  6. VANCOMYCIN [Suspect]
     Indication: URINARY TRACT INFECTION
     Route: 042
     Dates: start: 20120606, end: 20120624
  7. ZOFRAN [Concomitant]
     Route: 065
  8. SPASFON [Concomitant]
     Route: 065
  9. VINCRISTINE [Concomitant]
     Dates: start: 20120604
  10. PRIMPERAN TAB [Concomitant]

REACTIONS (2)
  - ACUTE PULMONARY OEDEMA [None]
  - RENAL FAILURE [None]
